FAERS Safety Report 6271028-4 (Version None)
Quarter: 2009Q3

REPORT INFORMATION
  Report Type: 
  Country: None (occurrence: None)
  Receive Date: 20090716
  Receipt Date: 20090706
  Transmission Date: 20100115
  Serious: Yes (Other)
  Sender: FDA-Public Use
  Company Number: US-ELI_LILLY_AND_COMPANY-US200906000568

PATIENT
  Age: 50 Year
  Sex: Female

DRUGS (6)
  1. CYMBALTA [Interacting]
     Dosage: 30 MG, DAILY (1/D)
     Dates: start: 20090127, end: 20090413
  2. CYMBALTA [Interacting]
     Dosage: 60 MG, DAILY (1/D)
     Dates: start: 20090414, end: 20090523
  3. CYMBALTA [Interacting]
     Dosage: 30 MG, DAILY (1/D)
     Dates: start: 20090525
  4. ZYPREXA [Suspect]
     Dosage: 2.5 MG, UNK
     Dates: start: 20090212, end: 20090523
  5. CHANTIX                            /05703001/ [Concomitant]
     Indication: SMOKING CESSATION THERAPY
     Dosage: 0.5 MG, 2/D
     Dates: start: 20090514, end: 20090520
  6. CHANTIX                            /05703001/ [Concomitant]
     Dosage: 1 MG, 2/D
     Dates: start: 20090521, end: 20090523

REACTIONS (3)
  - DRUG INTERACTION [None]
  - NEUROLEPTIC MALIGNANT SYNDROME [None]
  - SEROTONIN SYNDROME [None]
